FAERS Safety Report 18672370 (Version 2)
Quarter: 2021Q3

REPORT INFORMATION
  Report Type: Spontaneous
  Country: CA (occurrence: CA)
  Receive Date: 20201228
  Receipt Date: 20210923
  Transmission Date: 20211014
  Serious: Yes (Other)
  Sender: FDA-Public Use
  Company Number: CA-JNJFOC-20201246128

PATIENT
  Age: 23 Year
  Sex: Female

DRUGS (6)
  1. ONDANSETRON HYDROCHLORIDE. [Concomitant]
     Active Substance: ONDANSETRON HYDROCHLORIDE
  2. BOTULINUM TOXIN TYPE A [Concomitant]
     Active Substance: BOTULINUM TOXIN TYPE A
  3. TOPAMAX [Suspect]
     Active Substance: TOPIRAMATE
     Indication: MIGRAINE PROPHYLAXIS
     Route: 048
  4. MIRENA [Concomitant]
     Active Substance: LEVONORGESTREL
  5. TOPAMAX [Suspect]
     Active Substance: TOPIRAMATE
     Route: 048
  6. PROPRANOLOL HYDROCHLORIDE. [Suspect]
     Active Substance: PROPRANOLOL HYDROCHLORIDE
     Indication: MIGRAINE
     Route: 065

REACTIONS (4)
  - Pain [Unknown]
  - Hypoaesthesia [Unknown]
  - Drug intolerance [Unknown]
  - Drug ineffective [Unknown]
